FAERS Safety Report 16728693 (Version 19)
Quarter: 2022Q3

REPORT INFORMATION
  Report Type: Report from Study
  Country: US (occurrence: US)
  Receive Date: 20190822
  Receipt Date: 20220920
  Transmission Date: 20221027
  Serious: Yes (Hospitalization)
  Sender: FDA-Public Use
  Company Number: US-TESAROUBC-2019-TSO02404-US

PATIENT

DRUGS (29)
  1. NIRAPARIB [Suspect]
     Active Substance: NIRAPARIB
     Indication: Ovarian cancer recurrent
     Dosage: 200 MG, Z QD,  ON DAYS 1-28 OF EACH 28-DAY CYCLE
     Route: 048
     Dates: start: 20190501, end: 20190604
  2. NIRAPARIB [Suspect]
     Active Substance: NIRAPARIB
     Dosage: UNK
     Route: 048
     Dates: end: 20190612
  3. NIRAPARIB [Suspect]
     Active Substance: NIRAPARIB
     Dosage: 200 MG, Z
     Route: 048
     Dates: start: 20190619
  4. NIRAPARIB [Suspect]
     Active Substance: NIRAPARIB
     Dosage: 200 MG, QD
     Route: 048
     Dates: start: 20190821
  5. COBIMETINIB [Suspect]
     Active Substance: COBIMETINIB
     Indication: Ovarian cancer recurrent
     Dosage: 60 MG, Z ON DAYS 1-21 OF EACH 28-DAY CYCLE
     Route: 048
     Dates: start: 20190501, end: 20190604
  6. COBIMETINIB [Suspect]
     Active Substance: COBIMETINIB
     Dosage: UNK
     Route: 048
     Dates: end: 20190612
  7. COBIMETINIB [Suspect]
     Active Substance: COBIMETINIB
     Dosage: 60 MG, Z ON DAYS 1-21 OF EACH 28-DAY CYCLE
     Route: 048
     Dates: start: 20190618
  8. COBIMETINIB [Suspect]
     Active Substance: COBIMETINIB
     Dosage: 40 MG, Z ON DAYS 1-21 OF EACH 28 DAY CYCLE
     Route: 048
     Dates: start: 20190821
  9. ATEZOLIZUMAB [Suspect]
     Active Substance: ATEZOLIZUMAB
     Indication: Ovarian cancer recurrent
     Dosage: 840 MG, Z ON DAYS 1 AND 15 (+/-3 DAYS) OF EACH 28-DAY CYCLE
     Route: 041
     Dates: start: 20190501, end: 20190501
  10. ATEZOLIZUMAB [Suspect]
     Active Substance: ATEZOLIZUMAB
     Dosage: 840 MG, Z 1 IN 2 WK
     Route: 041
     Dates: start: 20190529, end: 20190529
  11. ATEZOLIZUMAB [Suspect]
     Active Substance: ATEZOLIZUMAB
     Dosage: UNK
     Route: 041
     Dates: start: 20190612, end: 20190612
  12. ATEZOLIZUMAB [Suspect]
     Active Substance: ATEZOLIZUMAB
     Dosage: 840 MG, ON DAYS 1 AND 15 OF EACH 28 DAY CYCLE
     Route: 041
     Dates: start: 20190807, end: 20190807
  13. AMARYL [Concomitant]
     Active Substance: GLIMEPIRIDE
     Indication: Type 2 diabetes mellitus
     Dosage: 2 MG, BID
     Route: 048
     Dates: start: 2009, end: 20190627
  14. JANUMET [Concomitant]
     Active Substance: METFORMIN HYDROCHLORIDE\SITAGLIPTIN PHOSPHATE
     Indication: Type 2 diabetes mellitus
     Dosage: 1000 MG, BID
     Route: 048
     Dates: start: 2009, end: 20190627
  15. VITAMIN D3 [Concomitant]
     Active Substance: CHOLECALCIFEROL
     Indication: Product used for unknown indication
     Dosage: 1000 DF (1000 UNITS), QD
     Route: 048
     Dates: start: 2015
  16. IMODIUM [Concomitant]
     Active Substance: LOPERAMIDE HYDROCHLORIDE
     Indication: Diarrhoea
     Dosage: 2 MG, PRN
     Route: 048
     Dates: start: 20190513, end: 20190513
  17. KLONOPIN [Concomitant]
     Active Substance: CLONAZEPAM
     Indication: Depression
     Dosage: 0.5 MG, BID
     Route: 048
     Dates: start: 1994
  18. KLONOPIN [Concomitant]
     Active Substance: CLONAZEPAM
     Indication: Panic disorder
  19. LEXAPRO [Concomitant]
     Active Substance: ESCITALOPRAM OXALATE
     Indication: Depression
     Dosage: 10 MG, QD
     Route: 048
     Dates: start: 1999
  20. LEXAPRO [Concomitant]
     Active Substance: ESCITALOPRAM OXALATE
     Indication: Panic disorder
  21. LIPITOR [Concomitant]
     Active Substance: ATORVASTATIN CALCIUM
     Indication: Hyperlipidaemia
     Dosage: 20 MG, QD
     Route: 048
     Dates: start: 2018
  22. NAPHAZOLINE + PHENIRAMINE [Concomitant]
     Indication: Dry eye
     Dosage: 1 DF, PRN
     Route: 047
     Dates: start: 20190515
  23. BIOTIN [Concomitant]
     Active Substance: BIOTIN
     Indication: Dry mouth
     Dosage: UNK
     Route: 048
     Dates: start: 20190502, end: 20190709
  24. SUNSCREEN [Concomitant]
     Active Substance: HOMOSALATE\OCTINOXATE\OCTISALATE\OXYBENZONE\TITANIUM DIOXIDE
     Indication: Product used for unknown indication
     Dosage: 1 DF, PRN
     Route: 061
     Dates: start: 20190505
  25. ZOFRAN [Concomitant]
     Active Substance: ONDANSETRON HYDROCHLORIDE
     Indication: Nausea
     Dosage: 8 MG, TID
     Route: 048
     Dates: start: 20190501
  26. BENADRYL [Concomitant]
     Active Substance: DIPHENHYDRAMINE HYDROCHLORIDE
     Indication: Rash maculo-papular
     Dosage: UNK
     Route: 048
     Dates: start: 20190517, end: 20190612
  27. BENADRYL [Concomitant]
     Active Substance: DIPHENHYDRAMINE HYDROCHLORIDE
     Indication: Infusion related reaction
  28. MYCOLOG-II [Concomitant]
     Active Substance: NYSTATIN\TRIAMCINOLONE ACETONIDE
     Indication: Rash maculo-papular
     Dosage: 100000-0.1 UNIT/GM-% (0.1 %,2 IN 1 D)
     Route: 061
     Dates: start: 20190522, end: 20190528
  29. GLIMEPIRIDE [Concomitant]
     Active Substance: GLIMEPIRIDE
     Indication: Type 2 diabetes mellitus
     Dosage: 2 MG, BID
     Dates: start: 2009, end: 20190627

REACTIONS (3)
  - Rash papular [Recovered/Resolved]
  - Hyperglycaemia [Not Recovered/Not Resolved]
  - Diarrhoea [Recovered/Resolved]

NARRATIVE: CASE EVENT DATE: 20190604
